FAERS Safety Report 22343910 (Version 2)
Quarter: 2023Q2

REPORT INFORMATION
  Report Type: Spontaneous
  Country: US (occurrence: US)
  Receive Date: 20230519
  Receipt Date: 20230531
  Transmission Date: 20230721
  Serious: Yes (Other)
  Sender: FDA-Public Use
  Company Number: US-SA-SAC20230518001058

PATIENT
  Age: 4 Year
  Sex: Male

DRUGS (6)
  1. ALPROLIX [Suspect]
     Active Substance: EFTRENONACOG ALFA
     Indication: Factor IX deficiency
     Dosage: 1500 U, BIW
     Route: 042
     Dates: start: 202303
  2. ALPROLIX [Suspect]
     Active Substance: EFTRENONACOG ALFA
     Indication: Factor IX deficiency
     Dosage: 1500 U, BIW
     Route: 042
     Dates: start: 202303
  3. ALPROLIX [Suspect]
     Active Substance: EFTRENONACOG ALFA
     Dosage: 250 U, BIW
     Route: 042
     Dates: start: 202303
  4. ALPROLIX [Suspect]
     Active Substance: EFTRENONACOG ALFA
     Dosage: 250 U, BIW
     Route: 042
     Dates: start: 202303
  5. ALPROLIX [Suspect]
     Active Substance: EFTRENONACOG ALFA
     Dosage: INFUSE 1750 UNITS (1575-1925) SLOW IV PUSH TWICE A WEEK ON SUNDAY AND WEDNESDAY FOR BLEEDING PROPHYL
     Route: 042
     Dates: start: 2023
  6. ALPROLIX [Suspect]
     Active Substance: EFTRENONACOG ALFA
     Dosage: INFUSE 1750 UNITS (1575-1925) SLOW IV PUSH TWICE A WEEK ON SUNDAY AND WEDNESDAY FOR BLEEDING PROPHYL
     Route: 042
     Dates: start: 2023

REACTIONS (2)
  - Haemorrhage [Recovered/Resolved]
  - Arthralgia [Not Recovered/Not Resolved]

NARRATIVE: CASE EVENT DATE: 20230101
